FAERS Safety Report 10620095 (Version 1)
Quarter: 2014Q4

REPORT INFORMATION
  Report Type: Spontaneous
  Country: US (occurrence: None)
  Receive Date: 20141201
  Receipt Date: 20141201
  Transmission Date: 20150529
  Serious: Yes (Other)
  Sender: FDA-Public Use
  Company Number: None

PATIENT
  Age: 18 Year
  Sex: Female
  Weight: 56.7 kg

DRUGS (1)
  1. NEXPLANON [Suspect]
     Active Substance: ETONOGESTREL

REACTIONS (10)
  - Hyperhidrosis [None]
  - Abdominal pain upper [None]
  - Blindness transient [None]
  - Coordination abnormal [None]
  - Asthenia [None]
  - Dizziness [None]
  - Fatigue [None]
  - Nausea [None]
  - Vision blurred [None]
  - Vertigo [None]

NARRATIVE: CASE EVENT DATE: 20141126
